FAERS Safety Report 9196153 (Version 1)
Quarter: 2013Q1

REPORT INFORMATION
  Report Type: Spontaneous
  Country: AU (occurrence: AU)
  Receive Date: 20130328
  Receipt Date: 20130328
  Transmission Date: 20140127
  Serious: Yes (Other)
  Sender: FDA-Public Use
  Company Number: AU-JNJFOC-20130313247

PATIENT
  Sex: Female

DRUGS (4)
  1. DOXORUBICIN HYDROCHLORIDE [Suspect]
     Indication: BREAST CANCER
     Route: 042
  2. EPIRUBICIN [Suspect]
     Indication: BREAST CANCER
     Route: 065
  3. TRASTUZUMAB [Concomitant]
     Indication: BREAST CANCER
     Route: 065
  4. RADIOTHERAPY [Concomitant]
     Indication: BREAST CANCER
     Route: 065

REACTIONS (1)
  - Left ventricular dysfunction [Unknown]
